FAERS Safety Report 22178459 (Version 1)
Quarter: 2023Q2

REPORT INFORMATION
  Report Type: Other
  Country: None (occurrence: JP)
  Receive Date: 20230405
  Receipt Date: 20230405
  Transmission Date: 20230722
  Serious: Yes (Hospitalization, Other)
  Sender: FDA-Public Use
  Company Number: JP-Breckenridge Pharmaceutical, Inc.-2139942

PATIENT
  Age: 85 Year
  Sex: Female

DRUGS (1)
  1. UNSPECIFIED INGREDIENT [Suspect]
     Active Substance: UNSPECIFIED INGREDIENT
     Indication: Dementia Alzheimer^s type
     Route: 062

REACTIONS (7)
  - Cholinergic syndrome [Recovered/Resolved]
  - Dyspnoea [Recovered/Resolved]
  - Miosis [Unknown]
  - Decreased appetite [Unknown]
  - Vomiting [Recovered/Resolved]
  - Product administered at inappropriate site [Recovered/Resolved]
  - Salivary hypersecretion [Recovered/Resolved]
